FAERS Safety Report 8283156-2 (Version None)
Quarter: 2012Q2

REPORT INFORMATION
  Report Type: 
  Country: None (occurrence: None)
  Receive Date: 20120413
  Receipt Date: 20120403
  Transmission Date: 20120825
  Serious: Yes (Other)
  Sender: FDA-Public Use
  Company Number: TN-GLAXOSMITHKLINE-B0795034A

PATIENT
  Age: 70 Year
  Sex: Male

DRUGS (1)
  1. ACITRETIN [Suspect]
     Indication: PSORIASIS
     Dosage: 25MG PER DAY

REACTIONS (4)
  - PAIN [None]
  - ERYTHEMA [None]
  - HAEMORRHAGE [None]
  - PYOGENIC GRANULOMA [None]
